FAERS Safety Report 18316348 (Version 1)
Quarter: 2020Q3

REPORT INFORMATION
  Report Type: Report from Study
  Country: US (occurrence: US)
  Receive Date: 20200927
  Receipt Date: 20200927
  Transmission Date: 20201103
  Serious: Yes (Hospitalization, Other)
  Sender: FDA-Public Use
  Company Number: US-B.I. PHARMACEUTICALS,INC./RIDGEFIELD-2019-BI-105103

PATIENT
  Age: 78 Year
  Sex: Male

DRUGS (3)
  1. OFEV [Suspect]
     Active Substance: NINTEDANIB
     Route: 048
     Dates: start: 20180302
  2. ESBRIET [Concomitant]
     Active Substance: PIRFENIDONE
     Indication: PRODUCT USED FOR UNKNOWN INDICATION
  3. OFEV [Suspect]
     Active Substance: NINTEDANIB
     Indication: IDIOPATHIC PULMONARY FIBROSIS
     Dosage: OFEV DOSE 300MG DAILY
     Route: 048
     Dates: start: 20190530

REACTIONS (18)
  - Drug intolerance [Unknown]
  - Aneurysm [Not Recovered/Not Resolved]
  - Colitis ischaemic [Unknown]
  - Aortic aneurysm [Not Recovered/Not Resolved]
  - Ageusia [Not Recovered/Not Resolved]
  - Flatulence [Not Recovered/Not Resolved]
  - Dehydration [Recovered/Resolved]
  - Accidental overdose [Unknown]
  - Pain [Unknown]
  - Blood pressure increased [Not Recovered/Not Resolved]
  - Taste disorder [Recovered/Resolved]
  - Haematochezia [Unknown]
  - Diarrhoea [Unknown]
  - Diarrhoea [Recovered/Resolved]
  - Weight decreased [Unknown]
  - Decreased appetite [Recovered/Resolved]
  - Rales [Not Recovered/Not Resolved]
  - Syncope [Recovered/Resolved]
